FAERS Safety Report 9690623 (Version 1)
Quarter: 2013Q4

REPORT INFORMATION
  Report Type: Spontaneous
  Country: PL (occurrence: PL)
  Receive Date: 20131115
  Receipt Date: 20131115
  Transmission Date: 20140711
  Serious: Yes (Other)
  Sender: FDA-Public Use
  Company Number: PL-BAXTER-2013BAX044883

PATIENT
  Age: 54 Year
  Sex: Male

DRUGS (2)
  1. NAVELBINE 50 MG/5 ML [Suspect]
     Indication: PRODUCT USED FOR UNKNOWN INDICATION
     Route: 042
     Dates: start: 20121204, end: 20121204
  2. NATRIUM CHLORATUM 0,9% BAXTER [Suspect]
     Indication: PRODUCT USED FOR UNKNOWN INDICATION
     Route: 042
     Dates: start: 20121204, end: 20121204

REACTIONS (2)
  - Injection site oedema [Unknown]
  - Injection site pain [Unknown]
